FAERS Safety Report 6952188-6 (Version None)
Quarter: 2010Q3

REPORT INFORMATION
  Report Type: 
  Country: None (occurrence: None)
  Receive Date: 20100829
  Receipt Date: 20100603
  Transmission Date: 20110219
  Serious: No
  Sender: FDA-Public Use
  Company Number: US-ABBOTT-09P-163-0606292-00

PATIENT
  Sex: Male
  Weight: 100.79 kg

DRUGS (4)
  1. NIASPAN [Suspect]
     Indication: BLOOD CHOLESTEROL INCREASED
     Route: 048
     Dates: start: 20090701
  2. UNKNOWN EIGHT OTHER MEDICATIONS [Concomitant]
     Indication: TYPE 2 DIABETES MELLITUS
  3. UNKNOWN EIGHT OTHER MEDICATIONS [Concomitant]
     Indication: PRODUCT USED FOR UNKNOWN INDICATION
  4. ASPIRIN [Concomitant]
     Indication: PRODUCT USED FOR UNKNOWN INDICATION
     Dosage: TAKES DAILY PRIOR TO NIASPAN ER
     Route: 048

REACTIONS (3)
  - BURNING SENSATION [None]
  - HOT FLUSH [None]
  - SKIN BURNING SENSATION [None]
